FAERS Safety Report 16718699 (Version 3)
Quarter: 2019Q4

REPORT INFORMATION
  Report Type: Report from Study
  Country: US (occurrence: US)
  Receive Date: 20190820
  Receipt Date: 20191018
  Transmission Date: 20200122
  Serious: Yes (Hospitalization, Other)
  Sender: FDA-Public Use
  Company Number: US-B.I. PHARMACEUTICALS,INC./RIDGEFIELD-2017-BI-007663

PATIENT
  Age: 72 Year
  Sex: Male
  Weight: 66.68 kg

DRUGS (6)
  1. OFEV [Suspect]
     Active Substance: NINTEDANIB
     Indication: CHRONIC RESPIRATORY FAILURE
     Dosage: TAKE 1 CAPSULE (150MG) BY MOUTH EVERY NIGHT AT BEDTIME
     Route: 048
     Dates: start: 20170607
  2. OFEV [Suspect]
     Active Substance: NINTEDANIB
     Indication: IDIOPATHIC PULMONARY FIBROSIS
     Route: 048
     Dates: start: 20170101
  3. OFEV [Suspect]
     Active Substance: NINTEDANIB
     Indication: WHEEZING
     Dosage: TAKE 1 TAB BY MOUTH TWISE A DAY WITH FOOD
     Route: 048
  4. OFEV [Suspect]
     Active Substance: NINTEDANIB
     Dosage: TAKE 1 CAPSULE (100MG) BY MOUTH EVERY NIGHT AT BEDTIME
     Route: 048
     Dates: start: 20180220, end: 20191018
  5. COLESTID [Concomitant]
     Active Substance: COLESTIPOL HYDROCHLORIDE
     Indication: PRODUCT USED FOR UNKNOWN INDICATION
     Route: 065
  6. LOMOTIL [Concomitant]
     Active Substance: ATROPINE SULFATE\DIPHENOXYLATE HYDROCHLORIDE
     Indication: PRODUCT USED FOR UNKNOWN INDICATION
     Route: 065

REACTIONS (19)
  - Head injury [Not Recovered/Not Resolved]
  - Rectal haemorrhage [Unknown]
  - Weight decreased [Not Recovered/Not Resolved]
  - Diarrhoea [Unknown]
  - Bronchitis [Unknown]
  - Diarrhoea [Not Recovered/Not Resolved]
  - Cataract [Unknown]
  - Haematochezia [Recovered/Resolved]
  - Dyspnoea exertional [Unknown]
  - Weight decreased [Unknown]
  - Erectile dysfunction [Not Recovered/Not Resolved]
  - Diarrhoea [Unknown]
  - Cough [Unknown]
  - Erectile dysfunction [Unknown]
  - Diarrhoea [Not Recovered/Not Resolved]
  - Pneumonia [Not Recovered/Not Resolved]
  - Dyspnoea [Unknown]
  - Flatulence [Unknown]
  - Alopecia [Unknown]

NARRATIVE: CASE EVENT DATE: 20170115
